FAERS Safety Report 5034691-1 (Version None)
Quarter: 2006Q2

REPORT INFORMATION
  Report Type: 
  Country: None (occurrence: None)
  Receive Date: 20060621
  Receipt Date: 20060606
  Transmission Date: 20061013
  Serious: Yes (Death)
  Sender: FDA-Public Use
  Company Number: 2006S1005228

PATIENT
  Age: 45 Year
  Sex: Male

DRUGS (8)
  1. CLOZAPINE [Suspect]
     Indication: AFFECTIVE DISORDER
     Dosage: 100 MG;QAM;ORAL, 500 MG;HS;ORAL
     Route: 048
     Dates: start: 20041201
  2. CLOZAPINE [Suspect]
     Indication: PSYCHOTIC DISORDER
     Dosage: 100 MG;QAM;ORAL, 500 MG;HS;ORAL
     Route: 048
     Dates: start: 20041201
  3. CLOZAPINE [Suspect]
     Indication: TRAUMATIC BRAIN INJURY
     Dosage: 100 MG;QAM;ORAL, 500 MG;HS;ORAL
     Route: 048
     Dates: start: 20041201
  4. CLOZAPINE [Suspect]
     Indication: AFFECTIVE DISORDER
     Dosage: 100 MG;QAM;ORAL, 500 MG;HS;ORAL
     Route: 048
     Dates: start: 20041201
  5. CLOZAPINE [Suspect]
     Indication: PSYCHOTIC DISORDER
     Dosage: 100 MG;QAM;ORAL, 500 MG;HS;ORAL
     Route: 048
     Dates: start: 20041201
  6. CLOZAPINE [Suspect]
     Indication: TRAUMATIC BRAIN INJURY
     Dosage: 100 MG;QAM;ORAL, 500 MG;HS;ORAL
     Route: 048
     Dates: start: 20041201
  7. RISPERIDONE [Concomitant]
  8. FLUOXETINE [Concomitant]

REACTIONS (3)
  - CONVULSION [None]
  - MYOCARDIAL INFARCTION [None]
  - PHARMACEUTICAL PRODUCT COMPLAINT [None]
